FAERS Safety Report 10174431 (Version 1)
Quarter: 2014Q2

REPORT INFORMATION
  Report Type: Spontaneous
  Country: US (occurrence: None)
  Receive Date: 20140514
  Receipt Date: 20140514
  Transmission Date: 20141212
  Serious: No
  Sender: FDA-Public Use
  Company Number: None

PATIENT
  Age: 53 Year
  Sex: Female

DRUGS (1)
  1. HUMIRA 40 MG ABBVIE [Suspect]
     Dosage: 40MG Q 15 DAYS PO
     Route: 048
     Dates: start: 20110511

REACTIONS (6)
  - Skin papilloma [None]
  - Melanocytic naevus [None]
  - Pruritus [None]
  - Drug ineffective [None]
  - Rash [None]
  - Rash [None]
